FAERS Safety Report 12520118 (Version 1)
Quarter: 2016Q2

REPORT INFORMATION
  Report Type: Spontaneous
  Country: US (occurrence: US)
  Receive Date: 20160630
  Receipt Date: 20160630
  Transmission Date: 20160815
  Serious: No
  Sender: FDA-Public Use
  Company Number: US-TRIS PHARMA, INC.-1054458

PATIENT
  Sex: Male

DRUGS (1)
  1. DEXTROMETHORPHAN POLISTIREX ER OS 6 MG/ML [Suspect]
     Active Substance: DEXTROMETHORPHAN HYDROBROMIDE
     Dates: start: 201510

REACTIONS (6)
  - Palpitations [None]
  - Feeling hot [None]
  - Feeling drunk [None]
  - Feeling abnormal [None]
  - Expired product administered [None]
  - Vision blurred [None]

NARRATIVE: CASE EVENT DATE: 201510
